FAERS Safety Report 5957904-8 (Version None)
Quarter: 2008Q4

REPORT INFORMATION
  Report Type: 
  Country: None (occurrence: None)
  Receive Date: 20081119
  Receipt Date: 20081111
  Transmission Date: 20090506
  Serious: Yes (Other)
  Sender: FDA-Public Use
  Company Number: NL-BAYER-200830149GPV

PATIENT
  Sex: Female
  Weight: 65 kg

DRUGS (7)
  1. CIPROFLOXACIN HCL [Suspect]
     Indication: LIVER ABSCESS
     Dosage: TOTAL DAILY DOSE: 1500 MG  UNIT DOSE: 750 MG
     Route: 048
     Dates: start: 20080314, end: 20081017
  2. METRONIDAZOLE [Suspect]
     Indication: LIVER ABSCESS
     Dosage: TOTAL DAILY DOSE: 1500 MG  UNIT DOSE: 500 MG
     Route: 048
     Dates: start: 20080314, end: 20081017
  3. NOVORAPID [Concomitant]
     Indication: DIABETES MELLITUS
     Route: 065
  4. PANTOZOL [Concomitant]
     Indication: DRUG USE FOR UNKNOWN INDICATION
     Dosage: TOTAL DAILY DOSE: 40 MG  UNIT DOSE: 40 MG
     Route: 048
  5. CREON [Concomitant]
     Indication: DRUG USE FOR UNKNOWN INDICATION
     Dosage: TOTAL DAILY DOSE: 1800 MG  UNIT DOSE: 600 MG
     Route: 048
  6. MORFINESULFAS [Concomitant]
     Indication: DRUG USE FOR UNKNOWN INDICATION
     Dosage: UNIT DOSE: 10 MG
     Route: 048
  7. LEVEMIR [Concomitant]
     Indication: DRUG USE FOR UNKNOWN INDICATION
     Route: 065

REACTIONS (2)
  - GAIT DISTURBANCE [None]
  - POLYNEUROPATHY [None]
